FAERS Safety Report 9186486 (Version 1)
Quarter: 2013Q1

REPORT INFORMATION
  Report Type: Spontaneous
  Country: US (occurrence: US)
  Receive Date: 20130325
  Receipt Date: 20130325
  Transmission Date: 20140127
  Serious: Yes (Other)
  Sender: FDA-Public Use
  Company Number: US-AMGEN-USASP2013018896

PATIENT
  Age: 65 Year
  Sex: Female

DRUGS (9)
  1. PROLIA [Suspect]
     Indication: OSTEOPOROSIS POSTMENOPAUSAL
     Dosage: 60 MG, UNK
  2. LEVOTHYROXINE [Concomitant]
     Dosage: 100 MUG, QD
  3. PREDNISONE [Concomitant]
     Dosage: 2.5 MG, QD
  4. GABAPENTIN [Concomitant]
     Indication: NEURALGIA
     Dosage: 400 MG, TID
  5. FENTANYL                           /00174602/ [Concomitant]
     Dosage: 200 MG, EVERY THREE DAYS
  6. OXYCODONE [Concomitant]
     Dosage: 30 MG, TID
  7. TUMS                               /00193601/ [Concomitant]
     Dosage: 4 UNK, QD
  8. VITAMIN D /00107901/ [Concomitant]
     Dosage: 3000 IU, QD
  9. VITAMIN B12                        /00056201/ [Concomitant]
     Dosage: 500 MUG, QD

REACTIONS (4)
  - Pain [Unknown]
  - Fracture [Unknown]
  - Tooth fracture [Unknown]
  - Dental caries [Unknown]
